FAERS Safety Report 15926240 (Version 1)
Quarter: 2019Q1

REPORT INFORMATION
  Report Type: Spontaneous
  Country: PT (occurrence: PT)
  Receive Date: 20190206
  Receipt Date: 20190206
  Transmission Date: 20190417
  Serious: Yes (Other)
  Sender: FDA-Public Use
  Company Number: PT-AUROBINDO-AUR-APL-2019-005230

PATIENT

DRUGS (2)
  1. FENTANYL. [Suspect]
     Active Substance: FENTANYL
     Indication: SPINAL ANAESTHESIA
     Dosage: 2 SEPARATE DOSES
     Route: 008
  2. BUPIVACAINE 5 MG/ML [Suspect]
     Active Substance: BUPIVACAINE
     Indication: SPINAL ANAESTHESIA
     Dosage: 5MG OF 0.5% IN 2 SEPARATE DOSES
     Route: 008

REACTIONS (9)
  - Faecaloma [Unknown]
  - Paraparesis [Unknown]
  - Asthenia [Unknown]
  - Neurotoxicity [Recovering/Resolving]
  - Urinary retention [Unknown]
  - Iatrogenic injury [None]
  - Cauda equina syndrome [Recovering/Resolving]
  - Procedural complication [None]
  - Anaesthetic complication neurological [None]
